FAERS Safety Report 9472116 (Version 1)
Quarter: 2013Q3

REPORT INFORMATION
  Report Type: Spontaneous
  Country: AU (occurrence: AU)
  Receive Date: 20130823
  Receipt Date: 20130823
  Transmission Date: 20140515
  Serious: Yes (Other)
  Sender: FDA-Public Use
  Company Number: AU-AMGEN-AUSSP2013058185

PATIENT
  Sex: Female

DRUGS (2)
  1. NPLATE [Suspect]
     Indication: IMMUNE THROMBOCYTOPENIC PURPURA
     Dosage: 7 MUG/KG, UNK
     Route: 065
  2. IMMUNOGLOBULINS [Concomitant]
     Indication: PLATELET COUNT DECREASED
     Route: 042

REACTIONS (1)
  - Platelet count abnormal [Not Recovered/Not Resolved]
